FAERS Safety Report 7968332-8 (Version None)
Quarter: 2011Q4

REPORT INFORMATION
  Report Type: 
  Country: None (occurrence: None)
  Receive Date: 20111209
  Receipt Date: 20111130
  Transmission Date: 20120403
  Serious: Yes (Hospitalization)
  Sender: FDA-Public Use
  Company Number: ES-JNJFOC-20111201054

PATIENT
  Sex: Female
  Weight: 62 kg

DRUGS (2)
  1. STELARA [Suspect]
     Indication: PSORIASIS
     Route: 058
     Dates: start: 20110501
  2. CEMIDON [Concomitant]
     Indication: TUBERCULOSIS

REACTIONS (3)
  - PUSTULAR PSORIASIS [None]
  - PSORIASIS [None]
  - THERAPEUTIC RESPONSE DECREASED [None]
